FAERS Safety Report 9288262 (Version 2)
Quarter: 2013Q2

REPORT INFORMATION
  Report Type: Report from Study
  Country: US (occurrence: US)
  Receive Date: 20130514
  Receipt Date: 20130604
  Transmission Date: 20140414
  Serious: Yes (Other)
  Sender: FDA-Public Use
  Company Number: PHEH2013US007189

PATIENT
  Sex: Male
  Weight: 73.47 kg

DRUGS (19)
  1. ZOMETA [Suspect]
     Indication: PLASMA CELL MYELOMA
     Dosage: 4 MG/5ML
     Route: 042
  2. CHEMOTHERAPEUTICS [Concomitant]
     Dosage: UNK UKN, UNK
  3. THALIDOMIDE [Concomitant]
     Dosage: 150 MG, DAILY
  4. DECADRON PHOSPHATE [Concomitant]
     Dosage: UNK UKN, UNK
  5. PREDNISONE [Concomitant]
     Dosage: 20 MG, UNK
     Dates: end: 20121231
  6. PREDNISONE [Concomitant]
     Dosage: 100MG PER ORAL D 1-4 Q 2 WEEKS
  7. PREDNISONE [Concomitant]
     Dosage: 100MG PER ORAL D 1-4 Q 4 WEEKS
  8. ACYCLOVIR [Concomitant]
     Dosage: 1 DF, BID
     Route: 048
  9. ACETAMINOPHEN [Concomitant]
     Dosage: UNK UKN, UNK
     Route: 048
  10. ASPIRIN [Concomitant]
     Dosage: 1 DF, DAILY
     Route: 048
  11. ASTELIN [Concomitant]
     Dosage: 2 SPRAYS, 2TIMES PER DAY
     Route: 045
  12. BACTRIM [Concomitant]
     Dosage: 1 DF, DAILY
     Route: 048
  13. HYTRIN [Concomitant]
     Dosage: 1 DF, AT BEDTIME
     Route: 048
  14. OXYBUTYNIN CHLORIDE [Concomitant]
     Dosage: 1 MG, DAILLY
     Route: 048
  15. REVLIMID [Concomitant]
     Dosage: UNK UKN, UNK
     Route: 048
  16. VELCADE [Concomitant]
     Dosage: 2.5 MG, UNK
     Route: 058
  17. AMBIEN [Concomitant]
     Dosage: UNK UKN, UNK
  18. UROXATRAL [Concomitant]
     Dosage: 1 DF, QD
     Route: 048
  19. CIPROFLOXACIN [Concomitant]
     Dosage: 500 MG, UNK

REACTIONS (30)
  - Plasma cell myeloma recurrent [Unknown]
  - Osteonecrosis of jaw [Unknown]
  - Plasma cell myeloma [Unknown]
  - Malignant neoplasm progression [Unknown]
  - Bone lesion [Unknown]
  - Mouth haemorrhage [Unknown]
  - Heart rate decreased [Unknown]
  - Tooth injury [Unknown]
  - Tooth infection [Unknown]
  - Pain in jaw [Unknown]
  - Tooth abscess [Unknown]
  - Bronchitis [Unknown]
  - Nasal congestion [Unknown]
  - Flank pain [Unknown]
  - Rhinitis allergic [Unknown]
  - Haematuria [Unknown]
  - Muscle spasms [Unknown]
  - Neutropenia [Unknown]
  - Back pain [Unknown]
  - Insomnia [Unknown]
  - Leukopenia [Unknown]
  - Blood pressure systolic increased [Unknown]
  - Pruritus [Unknown]
  - Rash [Unknown]
  - Thrombocytopenia [Unknown]
  - Haemoglobin decreased [Unknown]
  - Fatigue [Unknown]
  - Musculoskeletal pain [Unknown]
  - Blood pressure decreased [Unknown]
  - Musculoskeletal chest pain [Unknown]
